FAERS Safety Report 8827630 (Version 1)
Quarter: 2012Q4

REPORT INFORMATION
  Report Type: 
  Country: US (occurrence: US)
  Receive Date: 20121008
  Receipt Date: 20121008
  Transmission Date: 20130627
  Serious: Yes (Death, Other)
  Sender: FDA-Public Use
  Company Number: US-GENZYME-CLOF-1002314

PATIENT

DRUGS (5)
  1. CLOLAR [Suspect]
     Indication: BONE MARROW CONDITIONING REGIMEN
     Dosage: 40 mg/m2, qd
     Route: 042
  2. MELPHALAN [Suspect]
     Indication: BONE MARROW CONDITIONING REGIMEN
     Dosage: 100 mg/m2, UNK
     Route: 042
  3. TACROLIMUS [Concomitant]
     Indication: PROPHYLAXIS AGAINST GRAFT VERSUS HOST DISEASE
     Dosage: 0.02 mg/kg, qd
     Route: 042
  4. SIROLIMUS [Concomitant]
     Indication: PROPHYLAXIS AGAINST GRAFT VERSUS HOST DISEASE
     Dosage: 12 mg, qd
     Route: 048
  5. SIROLIMUS [Concomitant]
     Dosage: 4 mg, once
     Route: 048

REACTIONS (3)
  - Multi-organ failure [Fatal]
  - Infection [Fatal]
  - Transaminases increased [Unknown]
